FAERS Safety Report 7180584-3 (Version None)
Quarter: 2010Q4

REPORT INFORMATION
  Report Type: 
  Country: None (occurrence: None)
  Receive Date: 20101221
  Receipt Date: 20101213
  Transmission Date: 20110411
  Serious: Yes (Death, Other)
  Sender: FDA-Public Use
  Company Number: US-MILLENNIUM PHARMACEUTICALS, INC.-2010-06166

PATIENT
  Sex: Male

DRUGS (8)
  1. VELCADE [Suspect]
     Indication: MULTIPLE MYELOMA
     Dosage: UNK
     Dates: start: 20100317, end: 20100418
  2. THALOMID [Suspect]
     Indication: MULTIPLE MYELOMA
     Dosage: 50 MG, UNK
     Route: 048
     Dates: start: 20080510, end: 20090501
  3. THALOMID [Suspect]
     Dosage: 100 UNK, UNK
     Route: 048
     Dates: start: 20090531, end: 20091201
  4. THALOMID [Suspect]
     Dosage: 200 UNK, UNK
     Route: 048
     Dates: start: 20091230, end: 20100128
  5. ZOMETA [Concomitant]
     Indication: MULTIPLE MYELOMA
     Dosage: 4 MG, UNK
  6. DECADRON [Concomitant]
     Indication: PRODUCT USED FOR UNKNOWN INDICATION
  7. ALKERAN [Concomitant]
     Indication: PRODUCT USED FOR UNKNOWN INDICATION
     Dosage: UNK
     Dates: start: 20080225
  8. PREDNISONE [Concomitant]
     Indication: PRODUCT USED FOR UNKNOWN INDICATION
     Dosage: UNK
     Dates: start: 20080225

REACTIONS (4)
  - DISEASE PROGRESSION [None]
  - NEURALGIA [None]
  - PANCREATIC CARCINOMA [None]
  - SPINAL CORD COMPRESSION [None]
